FAERS Safety Report 6109154-2 (Version None)
Quarter: 2009Q1

REPORT INFORMATION
  Report Type: 
  Country: None (occurrence: None)
  Receive Date: 20090306
  Receipt Date: 20090226
  Transmission Date: 20090719
  Serious: Yes (Life-Threatening)
  Sender: FDA-Public Use
  Company Number: JHP200900052

PATIENT
  Age: 34 Year
  Sex: Female
  Weight: 85 kg

DRUGS (9)
  1. PITOCIN [Suspect]
     Dosage: 5 UNITS SLOW IV BOLUS, INTRAVENOUS; 10 UNITS INFUSION IN NORMAL SALINE 200 ML, INTRAVENOUS
     Route: 042
  2. METHYLDOPA [Concomitant]
  3. LABETALOL HCL [Concomitant]
  4. INSULIN (INSULIN) [Concomitant]
  5. LEVOTHYROXINE SODIUM [Concomitant]
  6. BUPIVACAINE [Concomitant]
  7. SODIUM CHLORIDE [Concomitant]
  8. SODIUM CHLORIDE [Concomitant]
  9. METHYLERGOMETRINE MALEATE (METHYLERGOMETRINE MALEATE) [Concomitant]

REACTIONS (10)
  - ANAPHYLACTIC REACTION [None]
  - DRUG INEFFECTIVE [None]
  - ECHOCARDIOGRAM ABNORMAL [None]
  - EJECTION FRACTION DECREASED [None]
  - ELECTROMECHANICAL DISSOCIATION [None]
  - HEPATIC ENZYME ABNORMAL [None]
  - PLEURAL EFFUSION [None]
  - RENAL FUNCTION TEST ABNORMAL [None]
  - SINUS TACHYCARDIA [None]
  - SNEEZING [None]
